FAERS Safety Report 9863325 (Version 1)
Quarter: 2014Q1

REPORT INFORMATION
  Report Type: Spontaneous
  Country: US (occurrence: US)
  Receive Date: 20140203
  Receipt Date: 20140203
  Transmission Date: 20141002
  Serious: No
  Sender: FDA-Public Use
  Company Number: US-PFIZER INC-2014031054

PATIENT
  Age: 50 Year
  Sex: Female
  Weight: 98.87 kg

DRUGS (2)
  1. PREGABALIN [Suspect]
     Dosage: UNK
  2. FLUDROCORTISONE [Concomitant]
     Dosage: UNK

REACTIONS (1)
  - Drug ineffective [Unknown]
